FAERS Safety Report 14253874 (Version 1)
Quarter: 2017Q4

REPORT INFORMATION
  Report Type: Report from Study
  Country: GB (occurrence: GB)
  Receive Date: 20171206
  Receipt Date: 20171206
  Transmission Date: 20180321
  Serious: Yes (Death, Other)
  Sender: FDA-Public Use
  Company Number: GB-VISTAPHARM, INC.-VER201711-001203

PATIENT
  Age: 54 Year
  Sex: Male

DRUGS (1)
  1. PREDNISOLONE. [Suspect]
     Active Substance: PREDNISOLONE
     Indication: TYPE 1 LEPRA REACTION

REACTIONS (4)
  - Multiple organ dysfunction syndrome [Fatal]
  - Gastric ulcer perforation [Unknown]
  - Dyspepsia [Unknown]
  - Acute abdomen [Unknown]
